FAERS Safety Report 13657560 (Version 2)
Quarter: 2017Q3

REPORT INFORMATION
  Report Type: Report from Study
  Country: US (occurrence: US)
  Receive Date: 20170615
  Receipt Date: 20170727
  Transmission Date: 20171127
  Serious: Yes (Death)
  Sender: FDA-Public Use
  Company Number: US-ACTELION-A-US2017-155158

PATIENT
  Age: 78 Year
  Sex: Female

DRUGS (3)
  1. SILDENAFIL. [Concomitant]
     Active Substance: SILDENAFIL
     Dosage: 40 MG, TID
     Dates: start: 20150611
  2. TYVASO [Concomitant]
     Active Substance: TREPROSTINIL
     Dosage: 12 BREATHS, QID
     Route: 055
     Dates: start: 201411
  3. OPSUMIT [Suspect]
     Active Substance: MACITENTAN
     Indication: PULMONARY ARTERIAL HYPERTENSION
     Dosage: 10 MG, QD
     Route: 048
     Dates: start: 20160202, end: 201705

REACTIONS (4)
  - Pulmonary arterial hypertension [Fatal]
  - Pulmonary hypertension [Fatal]
  - Interstitial lung disease [Fatal]
  - Disease progression [Fatal]

NARRATIVE: CASE EVENT DATE: 2017
